FAERS Safety Report 10531677 (Version 2)
Quarter: 2014Q4

REPORT INFORMATION
  Report Type: Report from Study
  Country: BR (occurrence: BR)
  Receive Date: 20141021
  Receipt Date: 20141021
  Transmission Date: 20150529
  Serious: Yes (Hospitalization, Other)
  Sender: FDA-Public Use
  Company Number: PHHY2014BR115169

PATIENT
  Sex: Female
  Weight: 50 kg

DRUGS (3)
  1. EXELON PATCH [Suspect]
     Active Substance: RIVASTIGMINE
     Indication: MEMORY IMPAIRMENT
     Dosage: 4.6 MG, QD (PATCH 5 CM2)
     Route: 062
  2. DEPAKOTE [Suspect]
     Active Substance: DIVALPROEX SODIUM
     Indication: EPILEPSY
  3. DEPAKOTE [Suspect]
     Active Substance: DIVALPROEX SODIUM
     Indication: SYNCOPE
     Dosage: 1 DF (1 TABLET), QD (IN THE MORNING)

REACTIONS (3)
  - Drug ineffective [Recovering/Resolving]
  - Seizure [Recovering/Resolving]
  - Memory impairment [Recovering/Resolving]
